FAERS Safety Report 18595557 (Version 1)
Quarter: 2020Q4

REPORT INFORMATION
  Report Type: Spontaneous
  Country: US (occurrence: US)
  Receive Date: 20201209
  Receipt Date: 20201209
  Transmission Date: 20210114
  Serious: No
  Sender: FDA-Public Use
  Company Number: US-BAYER-2020-266961

PATIENT
  Age: 51 Year
  Sex: Female

DRUGS (3)
  1. MYALEPT [Concomitant]
     Active Substance: METRELEPTIN
     Indication: CONGENITAL ANOMALY
     Route: 058
  2. ALEVE [Suspect]
     Active Substance: NAPROXEN SODIUM
     Indication: HEADACHE
     Dosage: A LOT
  3. ALEVE [Suspect]
     Active Substance: NAPROXEN SODIUM
     Indication: NECK PAIN

REACTIONS (2)
  - Abdominal pain upper [Recovering/Resolving]
  - Extra dose administered [Unknown]
